FAERS Safety Report 15752668 (Version 3)
Quarter: 2019Q3

REPORT INFORMATION
  Report Type: Report from Study
  Country: US (occurrence: US)
  Receive Date: 20181221
  Receipt Date: 20190801
  Transmission Date: 20191004
  Serious: Yes (Hospitalization)
  Sender: FDA-Public Use
  Company Number: US-ACTELION-A-NJ2018-180193

PATIENT
  Age: 74 Year
  Sex: Male
  Weight: 89.34 kg

DRUGS (4)
  1. OPSUMIT [Suspect]
     Active Substance: MACITENTAN
     Indication: PULMONARY ARTERIAL HYPERTENSION
     Dosage: 10 MG, QD
     Route: 048
     Dates: start: 20180829, end: 20181001
  2. OPSUMIT [Suspect]
     Active Substance: MACITENTAN
     Indication: CARDIAC FAILURE
  3. ADEMPAS [Concomitant]
     Active Substance: RIOCIGUAT
  4. OPSUMIT [Suspect]
     Active Substance: MACITENTAN
     Indication: HYPERTENSION

REACTIONS (8)
  - Oedema peripheral [Recovering/Resolving]
  - Quality of life decreased [Recovering/Resolving]
  - Oedema [Unknown]
  - Fluid overload [Recovered/Resolved]
  - Hypotension [Recovered/Resolved]
  - Pleural effusion [Unknown]
  - Cardiac failure congestive [Unknown]
  - Weight increased [Recovered/Resolved]

NARRATIVE: CASE EVENT DATE: 20180930
